FAERS Safety Report 13180173 (Version 1)
Quarter: 2017Q1

REPORT INFORMATION
  Report Type: Report from Study
  Country: US (occurrence: US)
  Receive Date: 20170202
  Receipt Date: 20170202
  Transmission Date: 20170428
  Serious: Yes (Other)
  Sender: FDA-Public Use
  Company Number: US-PFIZER INC-2015167274

PATIENT
  Age: 19 Year
  Sex: Male
  Weight: 112 kg

DRUGS (20)
  1. NEULASTA [Suspect]
     Active Substance: PEGFILGRASTIM
     Indication: ACUTE LYMPHOCYTIC LEUKAEMIA
     Dosage: UNK, CYCLIC, CLYCLE 1
     Route: 058
     Dates: start: 20150214, end: 20150214
  2. CYTARABINE. [Suspect]
     Active Substance: CYTARABINE
     Dosage: UNK, CYCLIC, CYCLE 2
     Route: 042
     Dates: start: 20150306, end: 20150308
  3. DEXAMETHASONE. [Suspect]
     Active Substance: DEXAMETHASONE
     Dosage: UNK, CYCLIC, CYCLE1
     Route: 042
     Dates: start: 20150219, end: 20150222
  4. METHOTREXATE SODIUM. [Suspect]
     Active Substance: METHOTREXATE SODIUM
     Dosage: UNK, CYCLIC, CYCLE 2
     Route: 042
     Dates: start: 20150304, end: 20150304
  5. VINCRISTINE SULFATE. [Suspect]
     Active Substance: VINCRISTINE SULFATE
     Indication: ACUTE LYMPHOCYTIC LEUKAEMIA
     Dosage: UNK, CYCLIC, CYCLE1
     Route: 042
     Dates: start: 20150209, end: 20150209
  6. VINCRISTINE SULFATE. [Suspect]
     Active Substance: VINCRISTINE SULFATE
     Dosage: UNK, CYCLIC, CYCLE1
     Route: 042
     Dates: start: 20150216, end: 20150216
  7. ACTIGALL [Concomitant]
     Active Substance: URSODIOL
     Indication: PROPHYLAXIS
     Dosage: UNK
     Dates: start: 20150409
  8. METHOTREXATE SODIUM. [Suspect]
     Active Substance: METHOTREXATE SODIUM
     Dosage: UNK, CYCLIC CYCLE 2
     Route: 037
     Dates: start: 20150306, end: 20150306
  9. CLOFARABINE [Suspect]
     Active Substance: CLOFARABINE
     Dosage: UNK,DAYS 1-4
     Route: 042
     Dates: start: 20150409, end: 20150412
  10. FLUDARABINE PHOSPHATE. [Suspect]
     Active Substance: FLUDARABINE PHOSPHATE
     Dosage: UNK, DAYS 1-4
     Route: 042
     Dates: start: 20150409, end: 20150412
  11. INOTUZUMAB OZOGAMICIN [Suspect]
     Active Substance: INOTUZUMAB OZOGAMICIN
     Indication: ACUTE LYMPHOCYTIC LEUKAEMIA
     Dosage: 1.3 MG/M2, CYCLIC, DAY 3, CYCLE 1
     Route: 042
     Dates: start: 20150211, end: 20150211
  12. CYTARABINE. [Suspect]
     Active Substance: CYTARABINE
     Indication: ACUTE LYMPHOCYTIC LEUKAEMIA
     Dosage: UNK, CYCLIC CYCLE 1
     Route: 037
     Dates: start: 20150216, end: 20150216
  13. METHOTREXATE SODIUM. [Suspect]
     Active Substance: METHOTREXATE SODIUM
     Indication: ACUTE LYMPHOCYTIC LEUKAEMIA
     Dosage: UNK, CYCLIC CYCLE 1
     Route: 037
     Dates: start: 20150210, end: 20150210
  14. VORINOSTAT [Suspect]
     Active Substance: VORINOSTAT
     Dosage: UNK, DAYS 1-4
     Route: 042
     Dates: start: 20150409, end: 20150412
  15. CYCLOPHOSPHAMIDE. [Suspect]
     Active Substance: CYCLOPHOSPHAMIDE
     Indication: ACUTE LYMPHOCYTIC LEUKAEMIA
     Dosage: UNK, CYCLIC, CYCLE1
     Route: 042
     Dates: start: 20150209, end: 20150212
  16. DEXAMETHASONE. [Suspect]
     Active Substance: DEXAMETHASONE
     Indication: ACUTE LYMPHOCYTIC LEUKAEMIA
     Dosage: UNK, CYCLIC, CYCLE1
     Route: 042
     Dates: start: 20150209, end: 20150212
  17. INOTUZUMAB OZOGAMICIN [Suspect]
     Active Substance: INOTUZUMAB OZOGAMICIN
     Dosage: 1.3 MG/M2, CYCLIC, DAY 3, CYCLE 2
     Route: 042
     Dates: start: 20150306, end: 20150306
  18. CYTARABINE. [Suspect]
     Active Substance: CYTARABINE
     Dosage: UNK, CYCLIC CYCLE 2
     Route: 037
     Dates: start: 20150310, end: 20150310
  19. BUSULFAN. [Suspect]
     Active Substance: BUSULFAN
     Dosage: UNK, DAYS 1-4
     Route: 042
     Dates: start: 20150409, end: 20150412
  20. MESNA. [Suspect]
     Active Substance: MESNA
     Indication: ACUTE LYMPHOCYTIC LEUKAEMIA
     Dosage: UNK, CYCLIC, CYCLE1
     Route: 042
     Dates: start: 20150209, end: 20150211

REACTIONS (1)
  - Hepatobiliary disease [Unknown]

NARRATIVE: CASE EVENT DATE: 20150428
